FAERS Safety Report 7514947-0 (Version None)
Quarter: 2011Q2

REPORT INFORMATION
  Report Type: 
  Country: None (occurrence: None)
  Receive Date: 20110601
  Receipt Date: 20110428
  Transmission Date: 20111010
  Serious: Yes (Other)
  Sender: FDA-Public Use
  Company Number: US-BAYER-2011-014014

PATIENT
  Age: 17 Year
  Sex: Female
  Weight: 63.492 kg

DRUGS (25)
  1. YASMIN [Suspect]
     Indication: ACNE
     Dosage: UNK
     Dates: start: 20080401, end: 20091001
  2. ACIDOPHILUS [Concomitant]
  3. DROSPIRENONE AND ETHINYL ESTRADIOL [Suspect]
     Indication: ACNE
     Dosage: UNK
     Dates: start: 20080401, end: 20091001
  4. DROSPIRENONE AND ETHINYL ESTRADIOL [Suspect]
     Indication: MENORRHAGIA
  5. PROTONIX [Concomitant]
     Dosage: 20 MG, UNK
  6. AMITIZA [Concomitant]
     Dosage: 8 MCG/24HR, UNK
  7. CIPROFLOXACIN [Concomitant]
     Dosage: 500 MG, UNK
  8. FLOMAX [Concomitant]
     Dosage: 0.4 MG, UNK
  9. PEG 3350 POWDER FOR SOLUTION [Concomitant]
     Dosage: 20 MG, UNK
  10. METOCLOPRAMIDE [Concomitant]
     Dosage: 10 MG, UNK
  11. LEXAPRO [Concomitant]
  12. CITRUCEL [Concomitant]
  13. SULFAMETHOXAZOLE AND TRIMETHOPRIM DOUBLE STRENGTH [Concomitant]
  14. DOCUSATE SODIUM [Concomitant]
  15. VITAMINS [Concomitant]
  16. PREDNISONE [Concomitant]
     Dosage: 20 MG, UNK
  17. KETOROLAC TROMETHAMINE [Concomitant]
     Dosage: 10 MG, UNK
  18. HYDROCODONE BITARTRATE [Concomitant]
  19. HYDROCODONE BITARTRATE [Concomitant]
  20. HYDROCODONE BITARTRATE AND ACETAMINOPHEN [Concomitant]
  21. FLUCONAZOLE [Concomitant]
     Dosage: 150 MG, UNK
  22. CEFPROZIL [Concomitant]
     Dosage: 500 MG, UNK
  23. MIRALAX [Concomitant]
  24. YASMIN [Suspect]
     Indication: MENORRHAGIA
  25. XOPENEX [Concomitant]

REACTIONS (9)
  - NAUSEA [None]
  - GASTROINTESTINAL DISORDER [None]
  - CHOLECYSTECTOMY [None]
  - PAIN [None]
  - BACK PAIN [None]
  - CHOLECYSTITIS CHRONIC [None]
  - ABDOMINAL PAIN UPPER [None]
  - VOMITING [None]
  - DIARRHOEA [None]
